FAERS Safety Report 5062116-9 (Version None)
Quarter: 2006Q3

REPORT INFORMATION
  Report Type: 
  Country: None (occurrence: None)
  Receive Date: 20060721
  Receipt Date: 20060712
  Transmission Date: 20061208
  Serious: Yes (Other)
  Sender: FDA-Public Use
  Company Number: HQWYE864713JUL06

PATIENT
  Age: 71 Year
  Sex: Male

DRUGS (2)
  1. CORDAREX (AMIODARONE, TABLET) [Suspect]
     Dosage: 200 MG TABLET ORAL
     Route: 048
     Dates: start: 20060101, end: 20060401
  2. RAMIPRIL [Suspect]
     Dosage: ORAL
     Route: 048
     Dates: start: 20010101

REACTIONS (5)
  - BRONCHITIS [None]
  - BRONCHOSPASM [None]
  - COUGH [None]
  - DYSPNOEA [None]
  - PULMONARY FUNCTION TEST DECREASED [None]
